FAERS Safety Report 10004718 (Version 3)
Quarter: 2015Q1

REPORT INFORMATION
  Report Type: Spontaneous
  Country: US (occurrence: US)
  Receive Date: 20140312
  Receipt Date: 20150211
  Transmission Date: 20150720
  Serious: Yes (Hospitalization)
  Sender: FDA-Public Use
  Company Number: US-GLAXOSMITHKLINE-A1063571A

PATIENT
  Age: 64 Year
  Sex: Female

DRUGS (7)
  1. ADVAIR HFA [Suspect]
     Active Substance: FLUTICASONE PROPIONATE\SALMETEROL XINAFOATE
     Dosage: 500/50 UG, 1 PUFF(S), BID
     Dates: start: 2005
  2. SINGULAIR [Concomitant]
     Active Substance: MONTELUKAST SODIUM
  3. FOSAMAX [Concomitant]
     Active Substance: ALENDRONATE SODIUM
  4. ADVIL [Concomitant]
     Active Substance: IBUPROFEN
  5. PAROXETINE [Concomitant]
     Active Substance: PAROXETINE\PAROXETINE HYDROCHLORIDE
  6. VITAMIN D3 [Concomitant]
     Active Substance: CHOLECALCIFEROL
  7. ADVAIR HFA [Suspect]
     Active Substance: FLUTICASONE PROPIONATE\SALMETEROL XINAFOATE
     Indication: ASTHMA
     Dosage: 250/50 UG, UNK UNK, U
     Route: 065
     Dates: start: 1999

REACTIONS (4)
  - Breast pain [Recovering/Resolving]
  - Asthma [Not Recovered/Not Resolved]
  - Cough [Recovered/Resolved]
  - Drug ineffective [Unknown]

NARRATIVE: CASE EVENT DATE: 20150122
